FAERS Safety Report 17497187 (Version 1)
Quarter: 2020Q1

REPORT INFORMATION
  Report Type: Report from Study
  Country: JP (occurrence: JP)
  Receive Date: 20200304
  Receipt Date: 20200304
  Transmission Date: 20200409
  Serious: Yes (Other)
  Sender: FDA-Public Use
  Company Number: JP-ACTELION-A-CH2019-198978

PATIENT
  Age: 70 Year
  Sex: Female

DRUGS (5)
  1. MEILAX [Concomitant]
     Active Substance: ETHYL LOFLAZEPATE
  2. PARIET [Concomitant]
     Active Substance: RABEPRAZOLE SODIUM
  3. TRACLEER [Suspect]
     Active Substance: BOSENTAN
     Dosage: 62.5 MG, QD
     Route: 048
     Dates: start: 20180427
  4. TRACLEER [Suspect]
     Active Substance: BOSENTAN
     Indication: SCLERODERMA ASSOCIATED DIGITAL ULCER
     Dosage: 62.5 MG, BID
     Route: 048
     Dates: start: 20170915, end: 20180426
  5. GASMOTIN [Concomitant]
     Active Substance: MOSAPRIDE CITRATE

REACTIONS (9)
  - Pyrexia [Recovered/Resolved]
  - Hepatic function abnormal [Recovering/Resolving]
  - Cholecystitis [Recovered/Resolved]
  - Aspartate aminotransferase increased [Recovering/Resolving]
  - Alanine aminotransferase increased [Recovering/Resolving]
  - Blood alkaline phosphatase increased [Recovering/Resolving]
  - Gamma-glutamyltransferase increased [Recovering/Resolving]
  - Blood bilirubin increased [Recovering/Resolving]
  - Primary biliary cholangitis [Recovered/Resolved]

NARRATIVE: CASE EVENT DATE: 20170929
